FAERS Safety Report 6259343-1 (Version None)
Quarter: 2009Q3

REPORT INFORMATION
  Report Type: 
  Country: None (occurrence: None)
  Receive Date: 20090706
  Receipt Date: 20090619
  Transmission Date: 20100115
  Serious: Yes (Other)
  Sender: FDA-Public Use
  Company Number: 1-18793473

PATIENT
  Sex: Female

DRUGS (1)
  1. PROSHIELD PLUS SKIN PROTECTANT [Suspect]
     Indication: RADIATION SKIN INJURY
     Dosage: OCCASIONNAL, TOPICAL
     Route: 061
     Dates: start: 20090516

REACTIONS (7)
  - ACCIDENTAL EXPOSURE [None]
  - APPLICATION SITE ERYTHEMA [None]
  - APPLICATION SITE RASH [None]
  - BLISTER [None]
  - DEFORMITY [None]
  - DERMATITIS CONTACT [None]
  - SCAR [None]
